FAERS Safety Report 19822717 (Version 1)
Quarter: 2021Q3

REPORT INFORMATION
  Report Type: Spontaneous
  Country: TN (occurrence: TN)
  Receive Date: 20210913
  Receipt Date: 20210913
  Transmission Date: 20211014
  Serious: Yes (Other)
  Sender: FDA-Public Use
  Company Number: TN-LUPIN PHARMACEUTICALS INC.-2021-17300

PATIENT
  Age: 35 Year
  Sex: Female

DRUGS (4)
  1. INDOMETACIN [Suspect]
     Active Substance: INDOMETHACIN
     Indication: ANGIOLYMPHOID HYPERPLASIA WITH EOSINOPHILIA
     Dosage: UNK
     Route: 065
  2. ISOTRETINOIN. [Suspect]
     Active Substance: ISOTRETINOIN
     Indication: ANGIOLYMPHOID HYPERPLASIA WITH EOSINOPHILIA
     Dosage: UNK
     Route: 065
  3. PENTOXIFYLLINE. [Suspect]
     Active Substance: PENTOXIFYLLINE
     Indication: ANGIOLYMPHOID HYPERPLASIA WITH EOSINOPHILIA
     Dosage: UNK
     Route: 065
  4. METHYLPREDNISOLONE. [Suspect]
     Active Substance: METHYLPREDNISOLONE
     Indication: ANGIOLYMPHOID HYPERPLASIA WITH EOSINOPHILIA
     Dosage: UNK
     Route: 065

REACTIONS (2)
  - Off label use [Unknown]
  - Drug ineffective for unapproved indication [Unknown]
